FAERS Safety Report 6345807-9 (Version None)
Quarter: 2009Q3

REPORT INFORMATION
  Report Type: 
  Country: None (occurrence: None)
  Receive Date: 20090909
  Receipt Date: 20090903
  Transmission Date: 20100115
  Serious: Yes (Hospitalization)
  Sender: FDA-Public Use
  Company Number: FR-JNJFOC-20090901781

PATIENT
  Sex: Female

DRUGS (3)
  1. GYNO - PEVARYL [Suspect]
     Indication: FUNGAL INFECTION
     Route: 061
     Dates: start: 20090613, end: 20090613
  2. FLUCONAZOLE [Suspect]
     Indication: FUNGAL INFECTION
     Route: 048
     Dates: start: 20090519, end: 20090610
  3. DAFALGAN [Suspect]
     Indication: PYREXIA
     Route: 048

REACTIONS (5)
  - APHTHOUS STOMATITIS [None]
  - COUGH [None]
  - DIARRHOEA [None]
  - DRUG RASH WITH EOSINOPHILIA AND SYSTEMIC SYMPTOMS [None]
  - LYMPHADENOPATHY [None]
